FAERS Safety Report 5667204-1 (Version None)
Quarter: 2008Q1

REPORT INFORMATION
  Report Type: 
  Country: None (occurrence: None)
  Receive Date: 20080315
  Receipt Date: 20080115
  Transmission Date: 20080703
  Serious: No
  Sender: FDA-Public Use
  Company Number: US-ABBOTT-08P-163-0433749-00

PATIENT
  Sex: Female
  Weight: 79.904 kg

DRUGS (10)
  1. HUMIRA [Suspect]
     Indication: CROHN'S DISEASE
     Route: 058
     Dates: start: 20071116
  2. MESALAMINE [Concomitant]
     Indication: CROHN'S DISEASE
     Route: 048
     Dates: start: 20050101
  3. COLESTIPOL HYDROCHLORIDE [Concomitant]
     Indication: CROHN'S DISEASE
     Route: 048
     Dates: start: 20030101
  4. CHANTIX [Concomitant]
     Indication: EX-SMOKER
     Route: 048
     Dates: start: 20071102
  5. LRYICA [Concomitant]
     Indication: FIBROMYALGIA
     Route: 048
     Dates: start: 20071102
  6. LOMOTIL [Concomitant]
     Indication: CROHN'S DISEASE
     Route: 048
  7. VENLAFAXINE HCL [Concomitant]
     Indication: FIBROMYALGIA
     Route: 048
     Dates: start: 20030101
  8. ESOMEPRAZOLE MAGNESIUM [Concomitant]
     Indication: DRUG USE FOR UNKNOWN INDICATION
     Route: 048
  9. ALPRAZOLAM [Concomitant]
     Indication: INSOMNIA
     Route: 048
  10. ZOLPIDEM TARTRATE [Concomitant]
     Indication: INSOMNIA
     Route: 048

REACTIONS (4)
  - CYST [None]
  - EAR INFECTION [None]
  - HEADACHE [None]
  - PHARYNGOLARYNGEAL PAIN [None]
